FAERS Safety Report 21479660 (Version 1)
Quarter: 2022Q4

REPORT INFORMATION
  Report Type: Spontaneous
  Country: US (occurrence: US)
  Receive Date: 20221019
  Receipt Date: 20221019
  Transmission Date: 20230113
  Serious: No
  Sender: FDA-Public Use
  Company Number: US-AMGEN-USASP2022176832

PATIENT
  Age: 67 Year
  Sex: Male

DRUGS (1)
  1. REPATHA [Suspect]
     Active Substance: EVOLOCUMAB
     Indication: Product used for unknown indication
     Dosage: UNK
     Route: 065
     Dates: start: 2020

REACTIONS (8)
  - Eye pruritus [Unknown]
  - Circumoral swelling [Unknown]
  - Paraesthesia oral [Unknown]
  - Paranasal sinus hypersecretion [Not Recovered/Not Resolved]
  - Paranasal sinus discomfort [Not Recovered/Not Resolved]
  - Nasal congestion [Unknown]
  - Fatigue [Unknown]
  - Lip swelling [Unknown]

NARRATIVE: CASE EVENT DATE: 20220701
